FAERS Safety Report 9385961 (Version 4)
Quarter: 2013Q3

REPORT INFORMATION
  Report Type: Report from Study
  Country: CA (occurrence: CA)
  Receive Date: 20130705
  Receipt Date: 20130925
  Transmission Date: 20140515
  Serious: Yes (Death, Hospitalization, Other)
  Sender: FDA-Public Use
  Company Number: CA-ASTELLAS-2013US007081

PATIENT
  Age: 48 Year
  Sex: Female

DRUGS (15)
  1. ERLOTINIB TABLET [Suspect]
     Indication: LUNG NEOPLASM MALIGNANT
     Dosage: UNK
     Route: 048
  2. AVASTIN /01555201/ [Suspect]
     Indication: LUNG NEOPLASM MALIGNANT
     Dosage: 750 MG, 1 IN 3 WEEKS
     Route: 042
     Dates: start: 20090121
  3. AVASTIN /01555201/ [Suspect]
     Indication: GASTROINTESTINAL CARCINOMA
     Dosage: 855 MG, 1 IN 3 WEEKS
     Route: 042
     Dates: start: 20110511
  4. AVASTIN /01555201/ [Suspect]
     Dosage: 859 MG, 1 IN 3 WEEKS
     Route: 042
     Dates: start: 20110601
  5. AVASTIN /01555201/ [Suspect]
     Dosage: 840 MG, 1 IN 3 WEEKS
     Route: 042
     Dates: start: 20120425
  6. AVASTIN /01555201/ [Suspect]
     Dosage: 846 MG, 1 IN 3 WEEKS
     Route: 042
     Dates: start: 20130612
  7. AVASTIN /01555201/ [Suspect]
     Dosage: 846 MG, 1 IN 3 WEEKS
     Route: 042
     Dates: start: 20130612
  8. ERBITUX [Suspect]
     Indication: LUNG NEOPLASM MALIGNANT
     Dosage: UNK
     Route: 065
     Dates: start: 2013, end: 2013
  9. ERBITUX [Suspect]
     Indication: GASTROINTESTINAL CARCINOMA
  10. CARBOPLATIN [Concomitant]
     Indication: PRODUCT USED FOR UNKNOWN INDICATION
     Dosage: UNK
     Route: 065
  11. PEMETREXED [Concomitant]
     Indication: PRODUCT USED FOR UNKNOWN INDICATION
     Dosage: UNK
     Route: 065
  12. DOCETAXEL [Concomitant]
     Indication: PRODUCT USED FOR UNKNOWN INDICATION
     Dosage: UNK
     Route: 065
  13. CRIZOTINIB [Concomitant]
     Indication: PRODUCT USED FOR UNKNOWN INDICATION
     Dosage: UNK
     Route: 065
  14. CISPLATIN [Concomitant]
     Indication: PRODUCT USED FOR UNKNOWN INDICATION
     Dosage: UNK
     Route: 065
  15. GEMCITABINE [Concomitant]
     Indication: PRODUCT USED FOR UNKNOWN INDICATION
     Dosage: UNK
     Route: 065

REACTIONS (10)
  - Vision blurred [Recovered/Resolved]
  - Drug intolerance [Unknown]
  - Febrile neutropenia [Recovered/Resolved]
  - Malignant neoplasm progression [Fatal]
  - Metastasis [Unknown]
  - Cough [Recovered/Resolved]
  - Muscle twitching [Recovered/Resolved]
  - Flushing [Recovered/Resolved]
  - Feeling hot [Recovered/Resolved]
  - Blood test abnormal [Unknown]
